FAERS Safety Report 8177327-3 (Version None)
Quarter: 2012Q1

REPORT INFORMATION
  Report Type: 
  Country: None (occurrence: None)
  Receive Date: 20120126
  Receipt Date: 20111212
  Transmission Date: 20120608
  Serious: No
  Sender: FDA-Public Use
  Company Number: PHEH2011US009012

PATIENT
  Age: 11 Year
  Sex: Male

DRUGS (6)
  1. TOPAMAX [Concomitant]
  2. FLONASE [Concomitant]
  3. AFINITOR [Suspect]
     Indication: RENAL CELL CARCINOMA
     Dosage: 5 MG DAILY, ORAL
     Route: 048
     Dates: start: 20111101
  4. AFINITOR [Suspect]
     Indication: ASTROCYTOMA
     Dosage: 5 MG DAILY, ORAL
     Route: 048
     Dates: start: 20111101
  5. ZYRTEC [Concomitant]
  6. SINGULAIR [Concomitant]

REACTIONS (3)
  - DRUG ADMINISTRATION ERROR [None]
  - TONGUE HAEMORRHAGE [None]
  - ORAL PAIN [None]
